FAERS Safety Report 13709190 (Version 1)
Quarter: 2017Q2

REPORT INFORMATION
  Report Type: Spontaneous
  Country: US (occurrence: US)
  Receive Date: 20170630
  Receipt Date: 20170630
  Transmission Date: 20170830
  Serious: Yes (Disabling)
  Sender: FDA-Public Use
  Company Number: None

PATIENT
  Age: 58 Year
  Sex: Female
  Weight: 54 kg

DRUGS (4)
  1. SYNTHROID [Concomitant]
     Active Substance: LEVOTHYROXINE SODIUM
  2. SUPPLEMENTS [Concomitant]
     Active Substance: UNSPECIFIED INGREDIENT
  3. CIPROFLAXIN 250 MG [Suspect]
     Active Substance: CIPROFLOXACIN
     Indication: URINARY TRACT INFECTION
     Dosage: ?          OTHER STRENGTH:MG;QUANTITY:10 TABLET(S);?
     Route: 048
     Dates: start: 20080624, end: 20080701
  4. VITAMINS [Concomitant]
     Active Substance: VITAMINS

REACTIONS (9)
  - Quality of life decreased [None]
  - Wheelchair user [None]
  - Tendon disorder [None]
  - Tendon injury [None]
  - Loss of personal independence in daily activities [None]
  - Impaired driving ability [None]
  - Social problem [None]
  - Weight increased [None]
  - Arthropathy [None]

NARRATIVE: CASE EVENT DATE: 20080624
